FAERS Safety Report 6370749-2 (Version None)
Quarter: 2009Q3

REPORT INFORMATION
  Report Type: 
  Country: None (occurrence: None)
  Receive Date: 20090923
  Receipt Date: 20070702
  Transmission Date: 20100115
  Serious: No
  Sender: FDA-Public Use
  Company Number: US-ASTRAZENECA-2006UW25436

PATIENT
  Age: 10035 Day
  Sex: Female
  Weight: 83.9 kg

DRUGS (12)
  1. SEROQUEL [Suspect]
     Indication: DEPRESSION
     Dosage: 25 MG - 200 MG
     Route: 048
     Dates: start: 20050805, end: 20080115
  2. SEROQUEL [Suspect]
     Indication: SLEEP DISORDER
     Dosage: 25 MG - 200 MG
     Route: 048
     Dates: start: 20050805, end: 20080115
  3. SEROQUEL [Suspect]
     Indication: PSYCHOTIC DISORDER
     Dosage: 25 MG - 200 MG
     Route: 048
     Dates: start: 20050805, end: 20080115
  4. SEROQUEL [Suspect]
     Route: 048
     Dates: start: 20050101
  5. SEROQUEL [Suspect]
     Route: 048
     Dates: start: 20050101
  6. SEROQUEL [Suspect]
     Route: 048
     Dates: start: 20050101
  7. RISPERDAL [Concomitant]
     Dates: start: 20060101
  8. TRAZODONE [Concomitant]
     Indication: SLEEP DISORDER
     Dosage: 50 MG - 150 MG
     Dates: start: 20050506
  9. WELLBUTRIN [Concomitant]
     Indication: DEPRESSION
     Dosage: 150 MG - 300 MG
     Dates: start: 20070911
  10. CLONAZEPAM [Concomitant]
     Route: 048
     Dates: start: 20040127
  11. EFFEXOR XR [Concomitant]
     Route: 048
     Dates: start: 20050427
  12. CYMBALTA [Concomitant]
     Indication: DEPRESSION
     Dates: start: 20061003

REACTIONS (3)
  - DIABETES MELLITUS [None]
  - DIABETES MELLITUS INADEQUATE CONTROL [None]
  - METABOLIC SYNDROME [None]
